FAERS Safety Report 9295235 (Version 3)
Quarter: 2013Q2

REPORT INFORMATION
  Report Type: Spontaneous
  Country: ES (occurrence: ES)
  Receive Date: 20130517
  Receipt Date: 20130612
  Transmission Date: 20140414
  Serious: Yes (Death, Hospitalization)
  Sender: FDA-Public Use
  Company Number: ES-009507513-1305ESP008939

PATIENT
  Age: 64 Year
  Sex: Male
  Weight: 80 kg

DRUGS (13)
  1. CANCIDAS [Suspect]
     Indication: UPPER RESPIRATORY FUNGAL INFECTION
     Dosage: 50 MG, DAILY
     Route: 042
     Dates: start: 20130420, end: 20130507
  2. METHYLPREDNISOLONE [Concomitant]
     Indication: ACUTE RESPIRATORY DISTRESS SYNDROME
     Dosage: 80 MG, DAILY
     Route: 042
     Dates: start: 20130418, end: 20130508
  3. ERYTHROMYCIN [Concomitant]
     Indication: GASTROINTESTINAL MOTILITY DISORDER
     Dosage: 250 MG, Q6H
     Route: 042
     Dates: start: 20130418, end: 20130425
  4. OMEPRAZOLE [Concomitant]
     Indication: PROPHYLAXIS
     Dosage: 40 MG, DAILY
     Route: 042
     Dates: start: 20130412, end: 20130512
  5. PRIMPERAN [Concomitant]
     Indication: GASTROINTESTINAL MOTILITY DISORDER
     Dosage: 10 MG, Q8H
     Route: 042
     Dates: start: 20130412, end: 20130512
  6. CLEXANE (ENOXAPARIN SODIUM) [Concomitant]
     Indication: THROMBOSIS PROPHYLAXIS
     Dosage: 80 MG, DAILY
     Route: 058
     Dates: start: 20130418, end: 20130512
  7. MEROPENEM [Concomitant]
     Indication: ANTIBIOTIC THERAPY
     Dosage: 1 G, Q8H
     Route: 042
     Dates: start: 20130412, end: 20130425
  8. AMIKACIN [Concomitant]
     Indication: ANTIBIOTIC THERAPY
     Dosage: 1 G, DAILY
     Route: 042
     Dates: start: 20130412, end: 20130425
  9. FUROSEMIDE [Concomitant]
     Indication: FLUID REPLACEMENT
     Dosage: 20 MG, Q12H
     Route: 042
     Dates: start: 20130421, end: 20130508
  10. MIDAZOLAM [Concomitant]
     Indication: ANALGESIC THERAPY
     Dosage: UNK
     Dates: start: 20130412, end: 20130512
  11. FENTANYL [Concomitant]
     Indication: ANALGESIC THERAPY
     Dosage: UNK
     Dates: start: 20130412, end: 20130512
  12. PROPOFOL [Concomitant]
     Indication: ANALGESIC THERAPY
     Dosage: UNK
     Dates: start: 20130412, end: 20130512
  13. CISATRACURIUM BESYLATE [Concomitant]
     Indication: NEUROMUSCULAR BLOCKADE
     Dosage: UNK
     Dates: start: 20130422, end: 20130425

REACTIONS (3)
  - Candida infection [Not Recovered/Not Resolved]
  - Respiratory failure [Fatal]
  - Drug ineffective [Unknown]
